FAERS Safety Report 9753299 (Version 1)
Quarter: 2013Q4

REPORT INFORMATION
  Report Type: Spontaneous
  Country: US (occurrence: US)
  Receive Date: 20131213
  Receipt Date: 20131213
  Transmission Date: 20140711
  Serious: No
  Sender: FDA-Public Use
  Company Number: US-TEVA-402808USA

PATIENT
  Age: 33 Year
  Sex: Female
  Weight: 71.73 kg

DRUGS (3)
  1. PARAGARD 380A [Suspect]
     Indication: CONTRACEPTION
     Route: 015
     Dates: start: 20121208
  2. MULTIVITAMIN [Concomitant]
     Indication: VITAMIN SUPPLEMENTATION
  3. MOTRIN [Concomitant]
     Indication: DYSMENORRHOEA
     Dosage: DAY BEFORE PERIOD AND 1ST DAY OF EACH PERIOD
     Route: 048
     Dates: start: 201201

REACTIONS (4)
  - Coital bleeding [Not Recovered/Not Resolved]
  - Pelvic pain [Not Recovered/Not Resolved]
  - Menorrhagia [Not Recovered/Not Resolved]
  - Metrorrhagia [Not Recovered/Not Resolved]
